FAERS Safety Report 5572919-X (Version None)
Quarter: 2007Q4

REPORT INFORMATION
  Report Type: 
  Country: None (occurrence: None)
  Receive Date: 20071219
  Receipt Date: 20071219
  Transmission Date: 20080405
  Serious: No
  Sender: FDA-Public Use
  Company Number: None

PATIENT
  Sex: Male
  Weight: 64.4108 kg

DRUGS (1)
  1. LITHIUM CARBONATE [Suspect]
     Dosage: 600MGAM/900MGHS  PO
     Route: 048

REACTIONS (1)
  - LEUKOCYTOSIS [None]
